FAERS Safety Report 10247852 (Version 2)
Quarter: 2014Q2

REPORT INFORMATION
  Report Type: Spontaneous
  Country: US (occurrence: US)
  Receive Date: 20140619
  Receipt Date: 20140619
  Transmission Date: 20141212
  Serious: Yes (Hospitalization, Other)
  Sender: FDA-Public Use
  Company Number: US-009507513-2010SP058603

PATIENT
  Sex: Female
  Weight: 90.72 kg

DRUGS (3)
  1. NUVARING [Suspect]
     Indication: ENDOMETRIOSIS
     Dates: start: 200709, end: 200709
  2. NUVARING [Suspect]
     Indication: CONTRACEPTION
     Dates: start: 200807, end: 20081027
  3. COUMADIN [Suspect]
     Indication: PULMONARY EMBOLISM
     Dates: start: 200810, end: 201003

REACTIONS (11)
  - Hypercoagulation [Unknown]
  - Pulmonary embolism [Unknown]
  - Pulmonary infarction [Unknown]
  - Panic attack [Unknown]
  - Weight decreased [Unknown]
  - Change of bowel habit [Unknown]
  - Anaemia [Not Recovered/Not Resolved]
  - Dyspepsia [Unknown]
  - Leiomyoma [Unknown]
  - Emotional disorder [Unknown]
  - Depression [Unknown]
